FAERS Safety Report 7859404-7 (Version None)
Quarter: 2011Q4

REPORT INFORMATION
  Report Type: 
  Country: None (occurrence: None)
  Receive Date: 20111021
  Receipt Date: 20100901
  Transmission Date: 20120403
  Serious: Yes (Hospitalization)
  Sender: FDA-Public Use
  Company Number: 2011030073

PATIENT
  Sex: Female
  Weight: 63.5036 kg

DRUGS (1)
  1. VIVAGLOBIN [Suspect]
     Indication: IMMUNODEFICIENCY COMMON VARIABLE
     Dosage: (7.36 G 2X/WEEK SUBCUTANEOUS)
     Route: 058
     Dates: start: 20090126, end: 20101123

REACTIONS (8)
  - WOUND SECRETION [None]
  - STREPTOCOCCAL INFECTION [None]
  - ANTIBIOTIC RESISTANT STAPHYLOCOCCUS TEST POSITIVE [None]
  - CANDIDA TEST POSITIVE [None]
  - WOUND DEHISCENCE [None]
  - PELVIC ABSCESS [None]
  - CULTURE WOUND POSITIVE [None]
  - BACTERIAL INFECTION [None]
